FAERS Safety Report 13668286 (Version 2)
Quarter: 2017Q3

REPORT INFORMATION
  Report Type: Spontaneous
  Country: US (occurrence: US)
  Receive Date: 20170620
  Receipt Date: 20170707
  Transmission Date: 20171127
  Serious: No
  Sender: FDA-Public Use
  Company Number: US-PFIZER INC-2017267028

PATIENT
  Age: 6 Year
  Sex: Female
  Weight: 24.95 kg

DRUGS (1)
  1. FLUCONAZOLE. [Suspect]
     Active Substance: FLUCONAZOLE
     Indication: VULVOVAGINAL MYCOTIC INFECTION
     Dosage: 3.5 ML, 1X/DAY
     Route: 048
     Dates: start: 20170608

REACTIONS (4)
  - Lip erythema [Recovered/Resolved]
  - Lip dry [Recovered/Resolved]
  - Reaction to excipient [Unknown]
  - Scab [Recovered/Resolved]

NARRATIVE: CASE EVENT DATE: 20170614
